FAERS Safety Report 19694983 (Version 3)
Quarter: 2021Q3

REPORT INFORMATION
  Report Type: Report from Study
  Country: US (occurrence: US)
  Receive Date: 20210813
  Receipt Date: 20210826
  Transmission Date: 20211014
  Serious: Yes (Other)
  Sender: FDA-Public Use
  Company Number: NVSC2021US179350

PATIENT
  Age: 77 Year
  Sex: Male

DRUGS (2)
  1. ENTRESTO [Suspect]
     Active Substance: SACUBITRIL\VALSARTAN
     Dosage: 0.5 MG (24/26 MG)
     Route: 065
     Dates: start: 20210701, end: 20210818
  2. ENTRESTO [Suspect]
     Active Substance: SACUBITRIL\VALSARTAN
     Indication: CARDIAC FAILURE CHRONIC
     Dosage: 0.5 DF(24/26 MG)
     Route: 065
     Dates: start: 20210701

REACTIONS (8)
  - Dizziness [Recovering/Resolving]
  - Asthenia [Recovering/Resolving]
  - Heart rate abnormal [Unknown]
  - Dysstasia [Unknown]
  - Fatigue [Unknown]
  - Fluid retention [Unknown]
  - Weight decreased [Not Recovered/Not Resolved]
  - Feeling abnormal [Recovering/Resolving]

NARRATIVE: CASE EVENT DATE: 202107
